FAERS Safety Report 9742993 (Version 1)
Quarter: 2013Q4

REPORT INFORMATION
  Report Type: Spontaneous
  Country: CH (occurrence: CH)
  Receive Date: 20131210
  Receipt Date: 20131210
  Transmission Date: 20140711
  Serious: Yes (Hospitalization)
  Sender: FDA-Public Use
  Company Number: CH-PFIZER INC-2013348533

PATIENT
  Age: 64 Year
  Sex: Male
  Weight: 75 kg

DRUGS (1)
  1. VIAGRA [Suspect]
     Dosage: 25 MG, 3X/DAY
     Route: 048
     Dates: start: 20131030

REACTIONS (2)
  - Cerebral ischaemia [Recovering/Resolving]
  - Cerebral infarction [Recovering/Resolving]
